FAERS Safety Report 15345357 (Version 1)
Quarter: 2018Q3

REPORT INFORMATION
  Report Type: Spontaneous
  Country: FR (occurrence: FR)
  Receive Date: 20180903
  Receipt Date: 20180903
  Transmission Date: 20181010
  Serious: Yes (Death)
  Sender: FDA-Public Use
  Company Number: FR-ELI_LILLY_AND_COMPANY-FR201808013622

PATIENT
  Age: 29 Year
  Sex: Male
  Weight: 62 kg

DRUGS (4)
  1. CARBOPLATINE [Interacting]
     Active Substance: CARBOPLATIN
     Indication: BRONCHIAL CARCINOMA
     Dosage: 1380 MG, UNKNOWN
     Route: 042
     Dates: start: 20180709, end: 20180730
  2. METHYLPREDNISOLONE. [Interacting]
     Active Substance: METHYLPREDNISOLONE
     Indication: METASTASES TO CENTRAL NERVOUS SYSTEM
     Dosage: 148 MG, DAILY
     Route: 048
     Dates: start: 20180626
  3. PEMETREXED. [Suspect]
     Active Substance: PEMETREXED
     Indication: BRONCHIAL CARCINOMA
     Dosage: 730 MG, CYCLICAL
     Route: 042
     Dates: start: 20180709, end: 20180730
  4. KETOPROFENE                        /00321701/ [Interacting]
     Active Substance: KETOPROFEN
     Indication: PAIN
     Dosage: 200 MG, DAILY
     Route: 048
     Dates: start: 20180718

REACTIONS (5)
  - Off label use [Unknown]
  - Drug interaction [Fatal]
  - Sepsis [Fatal]
  - Aplasia [Fatal]
  - Lung disorder [Fatal]

NARRATIVE: CASE EVENT DATE: 20180709
